FAERS Safety Report 15951185 (Version 1)
Quarter: 2019Q1

REPORT INFORMATION
  Report Type: Spontaneous
  Country: US (occurrence: US)
  Receive Date: 20190212
  Receipt Date: 20190212
  Transmission Date: 20190417
  Serious: Yes (Other)
  Sender: FDA-Public Use
  Company Number: US-TARO PHARMACEUTICALS USA.,INC-2019SUN00068

PATIENT
  Age: 34 Year
  Sex: Female

DRUGS (2)
  1. BETAMETHASONE. [Suspect]
     Active Substance: BETAMETHASONE
     Indication: RASH
     Dosage: UNK
     Route: 061
  2. TRIAMCINOLONE [Suspect]
     Active Substance: TRIAMCINOLONE
     Indication: RASH
     Dosage: UNK
     Route: 061

REACTIONS (5)
  - Intentional product misuse [Unknown]
  - Perioral dermatitis [Recovered/Resolved]
  - Emotional distress [Unknown]
  - Drug dependence [Unknown]
  - Steroid withdrawal syndrome [Recovered/Resolved]
